FAERS Safety Report 25153548 (Version 1)
Quarter: 2025Q2

REPORT INFORMATION
  Report Type: Spontaneous
  Country: DE (occurrence: DE)
  Receive Date: 20250403
  Receipt Date: 20250403
  Transmission Date: 20250716
  Serious: Yes (Hospitalization, Other)
  Sender: AMGEN
  Company Number: DE-AMGEN-DEUSP2025060095

PATIENT
  Age: 43 Year
  Sex: Male

DRUGS (9)
  1. FILGRASTIM [Suspect]
     Active Substance: FILGRASTIM
     Indication: Neutropenia
     Route: 058
  2. OFATUMUMAB [Suspect]
     Active Substance: OFATUMUMAB
     Indication: Relapsing-remitting multiple sclerosis
     Route: 065
     Dates: start: 202212
  3. OCRELIZUMAB [Suspect]
     Active Substance: OCRELIZUMAB
     Indication: Relapsing-remitting multiple sclerosis
     Route: 040
     Dates: start: 201804
  4. FINGOLIMOD [Suspect]
     Active Substance: FINGOLIMOD
     Indication: Lymphopenia
     Route: 065
  5. FINGOLIMOD [Suspect]
     Active Substance: FINGOLIMOD
     Indication: Fungal infection
  6. DIMETHYL FUMARATE [Concomitant]
     Active Substance: DIMETHYL FUMARATE
  7. RITUXIMAB [Concomitant]
     Active Substance: RITUXIMAB
     Indication: Relapsing-remitting multiple sclerosis
     Route: 065
  8. INEBILIZUMAB [Concomitant]
     Active Substance: INEBILIZUMAB
     Indication: Relapsing-remitting multiple sclerosis
  9. UBLITUXIMAB [Concomitant]
     Active Substance: UBLITUXIMAB
     Indication: Relapsing-remitting multiple sclerosis

REACTIONS (5)
  - Infection [Recovered/Resolved]
  - Lymphopenia [Recovered/Resolved]
  - Neutropenia [Recovered/Resolved]
  - Myelosuppression [Unknown]
  - Central nervous system lesion [Not Recovered/Not Resolved]
